FAERS Safety Report 8173034-1 (Version None)
Quarter: 2012Q1

REPORT INFORMATION
  Report Type: 
  Country: None (occurrence: None)
  Receive Date: 20120223
  Receipt Date: 20120210
  Transmission Date: 20120608
  Serious: Yes (Death)
  Sender: FDA-Public Use
  Company Number: JPI-P-012341

PATIENT
  Age: 41 Year
  Sex: Female

DRUGS (3)
  1. XYREM [Suspect]
     Indication: CATAPLEXY
     Dosage: 4.5 GM (2.25 GM, 2 IN 1 D), ORAL, (3.5 GM FIRST DOSE/ 3.75 GM SECOND DOSE), ORAL
     Route: 048
     Dates: start: 20070126
  2. XYREM [Suspect]
     Indication: CATAPLEXY
     Dosage: 4.5 GM (2.25 GM, 2 IN 1 D), ORAL, (3.5 GM FIRST DOSE/ 3.75 GM SECOND DOSE), ORAL
     Route: 048
     Dates: start: 20100517, end: 20100917
  3. OTHER AND UNSPECIFIED DRUGS, MEDICAMENTS, AND BIOLOGICAL SUBSTANCES [Suspect]
     Indication: PRODUCT USED FOR UNKNOWN INDICATION
     Dates: end: 20100917

REACTIONS (3)
  - SUDDEN DEATH [None]
  - ARRHYTHMIA [None]
  - ACCIDENTAL DEATH [None]
